FAERS Safety Report 18854788 (Version 1)
Quarter: 2021Q1

REPORT INFORMATION
  Report Type: Spontaneous
  Country: US (occurrence: US)
  Receive Date: 20210205
  Receipt Date: 20210205
  Transmission Date: 20210420
  Serious: No
  Sender: FDA-Public Use
  Company Number: US-MYLANLABS-2021M1006245

PATIENT
  Sex: Female

DRUGS (1)
  1. XULANE [Suspect]
     Active Substance: ETHINYL ESTRADIOL\NORELGESTROMIN
     Indication: CONTRACEPTION
     Dosage: 35/150 MICROGRAM (ONE PATCH EVERY 7 DAYS FOR 3 WEEKS THEN OFF ONE WEEK)
     Route: 062
     Dates: start: 20210124, end: 20210127

REACTIONS (3)
  - Product quality issue [Unknown]
  - Menstruation irregular [Unknown]
  - Product adhesion issue [Unknown]
